FAERS Safety Report 6569731-1 (Version None)
Quarter: 2010Q1

REPORT INFORMATION
  Report Type: 
  Country: None (occurrence: None)
  Receive Date: 20100204
  Receipt Date: 20100201
  Transmission Date: 20100710
  Serious: Yes (Death, Hospitalization, Other)
  Sender: FDA-Public Use
  Company Number: PHHY2009CA53341

PATIENT
  Sex: Male

DRUGS (2)
  1. CLOZARIL [Suspect]
     Dosage: 150 MG QHS
     Dates: start: 20090703
  2. SEROQUEL [Concomitant]
     Dosage: UNK
     Dates: start: 20091214

REACTIONS (13)
  - AORTIC ARTERIOSCLEROSIS [None]
  - ARTERIOSCLEROSIS CORONARY ARTERY [None]
  - CHRONIC OBSTRUCTIVE PULMONARY DISEASE [None]
  - COLECTOMY [None]
  - COLITIS ISCHAEMIC [None]
  - DEATH [None]
  - DIABETES MELLITUS [None]
  - HYPERTENSION [None]
  - JEJUNOSTOMY [None]
  - LARGE INTESTINE PERFORATION [None]
  - SCHIZOPHRENIA [None]
  - SEPSIS [None]
  - THROMBOSIS MESENTERIC VESSEL [None]
